FAERS Safety Report 23891242 (Version 1)
Quarter: 2024Q2

REPORT INFORMATION
  Report Type: Spontaneous
  Country: KR (occurrence: KR)
  Receive Date: 20240523
  Receipt Date: 20240523
  Transmission Date: 20240716
  Serious: Yes (Other)
  Sender: FDA-Public Use
  Company Number: None

PATIENT
  Age: 4 Year
  Sex: Female

DRUGS (5)
  1. HYDROCORTISONE [Suspect]
     Active Substance: HYDROCORTISONE
     Indication: Williams syndrome
     Dosage: 13 MILLIGRAM/SQ. METER, QD
     Route: 065
  2. HYDROCORTISONE [Suspect]
     Active Substance: HYDROCORTISONE
     Indication: Adrenogenital syndrome
     Dosage: 13 MILLIGRAM/SQ. METER, QD (ADJUSTED (UP TO 18 MG/M2/DAY) OVER THE COURSE OF SIX MONTHS)
     Route: 065
  3. HYDROCORTISONE [Suspect]
     Active Substance: HYDROCORTISONE
     Dosage: 18 MILLIGRAM/SQ. METER, QD (ADJUSTED (UP TO 18 MG/M2/DAY) OVER THE COURSE OF SIX MONTHS)
     Route: 065
  4. FLUDROCORTISONE [Suspect]
     Active Substance: FLUDROCORTISONE
     Indication: Williams syndrome
     Dosage: UNK
     Route: 065
  5. FLUDROCORTISONE [Suspect]
     Active Substance: FLUDROCORTISONE
     Indication: Adrenogenital syndrome

REACTIONS (1)
  - Precocious puberty [Unknown]
